FAERS Safety Report 7855596-4 (Version None)
Quarter: 2011Q4

REPORT INFORMATION
  Report Type: 
  Country: None (occurrence: None)
  Receive Date: 20111026
  Receipt Date: 20111011
  Transmission Date: 20120403
  Serious: Yes (Hospitalization)
  Sender: FDA-Public Use
  Company Number: AU-WATSON-2011-17463

PATIENT
  Age: 17 Year
  Sex: Female

DRUGS (2)
  1. BUPROPION HCL [Suspect]
     Indication: PRODUCT USED FOR UNKNOWN INDICATION
     Dosage: 7.96 G, SINGLE
     Route: 048
  2. LAMOTRIGINE [Suspect]
     Indication: PRODUCT USED FOR UNKNOWN INDICATION
     Dosage: 4 G, SINGLE
     Route: 048

REACTIONS (10)
  - GRAND MAL CONVULSION [None]
  - TACHYCARDIA [None]
  - VENTRICULAR TACHYCARDIA [None]
  - CARDIAC ARREST [None]
  - COMA SCALE ABNORMAL [None]
  - MULTIPLE DRUG OVERDOSE [None]
  - VENTRICULAR FIBRILLATION [None]
  - OVERDOSE [None]
  - COGNITIVE DISORDER [None]
  - CONVULSION [None]
